FAERS Safety Report 16932688 (Version 3)
Quarter: 2019Q4

REPORT INFORMATION
  Report Type: Report from Study
  Country: JP (occurrence: JP)
  Receive Date: 20191018
  Receipt Date: 20191220
  Transmission Date: 20200122
  Serious: Yes (Other)
  Sender: FDA-Public Use
  Company Number: JP-ROCHE-2283501

PATIENT
  Age: 64 Year
  Sex: Male
  Weight: 83 kg

DRUGS (9)
  1. OBINUTUZUMAB. [Suspect]
     Active Substance: OBINUTUZUMAB
     Dosage: DOSE INTERVAL UNCERTAINTY
     Route: 041
     Dates: start: 20190330
  2. OBINUTUZUMAB. [Suspect]
     Active Substance: OBINUTUZUMAB
     Dosage: DOSE INTERVAL UNCERTAINTY
     Route: 041
     Dates: start: 20190617
  3. OBINUTUZUMAB. [Suspect]
     Active Substance: OBINUTUZUMAB
     Dosage: DOSE INTERVAL UNCERTAINTY
     Route: 041
     Dates: start: 20190814
  4. OBINUTUZUMAB. [Suspect]
     Active Substance: OBINUTUZUMAB
     Dosage: DOSE INTERVAL UNCERTAINTY
     Route: 041
     Dates: start: 20190506
  5. OBINUTUZUMAB. [Suspect]
     Active Substance: OBINUTUZUMAB
     Dosage: DOSE INTERVAL UNCERTAINTY
     Route: 041
     Dates: start: 20190716
  6. OBINUTUZUMAB. [Suspect]
     Active Substance: OBINUTUZUMAB
     Dosage: DOSE INTERVAL UNCERTAINTY
     Route: 041
     Dates: start: 20190226
  7. OBINUTUZUMAB. [Suspect]
     Active Substance: OBINUTUZUMAB
     Indication: B-CELL LYMPHOMA
     Dosage: DOSE INTERVAL UNCERTAINTY
     Route: 041
     Dates: start: 20190219
  8. OBINUTUZUMAB. [Suspect]
     Active Substance: OBINUTUZUMAB
     Dosage: DOSE INTERVAL UNCERTAINTY
     Route: 041
     Dates: start: 20190305
  9. TREAKISYM [Suspect]
     Active Substance: BENDAMUSTINE HYDROCHLORIDE
     Indication: B-CELL LYMPHOMA
     Dosage: DOSE INTERVAL UNCERTAINTY?MOST RECENT DOSE PRIOR TO AE 16/AUG/2019
     Route: 041
     Dates: start: 20190220

REACTIONS (3)
  - Infusion related reaction [Recovered/Resolved]
  - Neutrophil count decreased [Recovered/Resolved]
  - Lymphocyte count decreased [Recovering/Resolving]

NARRATIVE: CASE EVENT DATE: 20190219
